FAERS Safety Report 7184014-7 (Version None)
Quarter: 2010Q4

REPORT INFORMATION
  Report Type: 
  Country: None (occurrence: None)
  Receive Date: 20101222
  Receipt Date: 20101207
  Transmission Date: 20110411
  Serious: Yes (Other)
  Sender: FDA-Public Use
  Company Number: PHHY2010US77769

PATIENT
  Sex: Male
  Weight: 61.4 kg

DRUGS (6)
  1. AFINITOR [Suspect]
     Indication: METASTATIC RENAL CELL CARCINOMA
     Dosage: 10 MG, QD
     Route: 048
     Dates: start: 20100914, end: 20101122
  2. AFINITOR [Suspect]
     Dosage: 5 MG, QD
     Route: 048
  3. VALPROIC ACID [Concomitant]
     Indication: CONVULSION
     Dosage: 250 MG, TID
     Route: 048
  4. PRILOSEC [Concomitant]
     Indication: GASTROOESOPHAGEAL REFLUX DISEASE
     Dosage: 20 MG, QD
     Route: 048
  5. PROPRANOLOL [Concomitant]
     Indication: BLOOD PRESSURE
     Dosage: 120 MG, QD
     Route: 048
  6. TEGRETOL [Concomitant]
     Indication: CONVULSION
     Dosage: 200 MG, TID
     Route: 048

REACTIONS (6)
  - ASCITES [None]
  - FATIGUE [None]
  - GENERAL PHYSICAL HEALTH DETERIORATION [None]
  - LIVER FUNCTION TEST ABNORMAL [None]
  - MALIGNANT NEOPLASM PROGRESSION [None]
  - METASTASES TO LIVER [None]
